FAERS Safety Report 16849557 (Version 1)
Quarter: 2019Q4

REPORT INFORMATION
  Report Type: Spontaneous
  Country: US (occurrence: US)
  Receive Date: 20190925
  Receipt Date: 20190925
  Transmission Date: 20200122
  Serious: No
  Sender: FDA-Public Use
  Company Number: None

PATIENT
  Age: 3 Year
  Sex: Female
  Weight: 17 kg

DRUGS (2)
  1. ATENOLOL. [Concomitant]
     Active Substance: ATENOLOL
     Dates: start: 20190502
  2. ENALAPRIL [Suspect]
     Active Substance: ENALAPRIL
     Route: 048

REACTIONS (2)
  - Periorbital swelling [None]
  - Pain [None]

NARRATIVE: CASE EVENT DATE: 20190924
